FAERS Safety Report 16312706 (Version 1)
Quarter: 2019Q2

REPORT INFORMATION
  Report Type: Spontaneous
  Country: ES (occurrence: ES)
  Receive Date: 20190515
  Receipt Date: 20190515
  Transmission Date: 20190711
  Serious: Yes (Death)
  Sender: FDA-Public Use
  Company Number: ES-ROCHE-2315602

PATIENT
  Age: 61 Year
  Sex: Male

DRUGS (2)
  1. CAPECITABINE. [Suspect]
     Active Substance: CAPECITABINE
     Indication: ADENOCARCINOMA GASTRIC
     Route: 065
  2. BRIVUDINE [Interacting]
     Active Substance: BRIVUDINE
     Indication: ADENOCARCINOMA GASTRIC
     Route: 047

REACTIONS (4)
  - Pancytopenia [Fatal]
  - Bronchopulmonary aspergillosis [Fatal]
  - Herpes zoster [Fatal]
  - Drug interaction [Fatal]
